FAERS Safety Report 19399662 (Version 1)
Quarter: 2021Q2

REPORT INFORMATION
  Report Type: Spontaneous
  Country: NL (occurrence: NL)
  Receive Date: 20210610
  Receipt Date: 20210610
  Transmission Date: 20210717
  Serious: Yes (Death)
  Sender: FDA-Public Use
  Company Number: NL-BAUSCH-BL-2021-019459

PATIENT
  Age: 16 Month
  Sex: Male
  Weight: 12 kg

DRUGS (1)
  1. MINIMS CYCLOPENTOLAAT HYDROCHLORIDE 10MG/ML OOGDRUPPELS, OPLOSSING [Suspect]
     Active Substance: CYCLOPENTOLATE HYDROCHLORIDE
     Indication: PRODUCT USED FOR UNKNOWN INDICATION
     Dosage: 2 DROPS, 10MG/ML
     Route: 065
     Dates: start: 2017

REACTIONS (1)
  - Status epilepticus [Fatal]

NARRATIVE: CASE EVENT DATE: 20170404
